FAERS Safety Report 20566306 (Version 1)
Quarter: 2022Q1

REPORT INFORMATION
  Report Type: Spontaneous
  Country: US (occurrence: US)
  Receive Date: 20220308
  Receipt Date: 20220308
  Transmission Date: 20220423
  Serious: Yes (Other)
  Sender: FDA-Public Use
  Company Number: US-ORPHANEU-2020000452

PATIENT

DRUGS (2)
  1. CYSTADANE [Suspect]
     Active Substance: BETAINE
     Indication: Product used for unknown indication
     Dosage: 3 SCOOPS FOUR TIMES DAILY
  2. CYSTADANE [Suspect]
     Active Substance: BETAINE
     Dosage: 6 SCOOPS DAILY

REACTIONS (3)
  - Gastric ulcer haemorrhage [Recovering/Resolving]
  - Off label use [Recovered/Resolved]
  - Inappropriate schedule of product administration [Recovered/Resolved]

NARRATIVE: CASE EVENT DATE: 20200101
